FAERS Safety Report 16697282 (Version 1)
Quarter: 2019Q3

REPORT INFORMATION
  Report Type: Spontaneous
  Country: US (occurrence: US)
  Receive Date: 20190626
  Receipt Date: 20190626
  Transmission Date: 20191004
  Serious: No
  Sender: FDA-Public Use
  Company Number: None

PATIENT
  Age: 61 Year
  Sex: Male
  Weight: 83.5 kg

DRUGS (1)
  1. DORAVIRINE [Suspect]
     Active Substance: DORAVIRINE
     Indication: HIV INFECTION
     Route: 048
     Dates: start: 20181121, end: 20190403

REACTIONS (2)
  - Abnormal behaviour [None]
  - Mood swings [None]

NARRATIVE: CASE EVENT DATE: 20190501
